FAERS Safety Report 8475416-7 (Version None)
Quarter: 2012Q2

REPORT INFORMATION
  Report Type: 
  Country: None (occurrence: None)
  Receive Date: 20120628
  Receipt Date: 20120625
  Transmission Date: 20120825
  Serious: No
  Sender: FDA-Public Use
  Company Number: US-PFIZER INC-2012153367

PATIENT
  Age: 62 Year
  Sex: Female
  Weight: 62.132 kg

DRUGS (6)
  1. LOVASTATIN [Concomitant]
     Indication: BLOOD CHOLESTEROL ABNORMAL
     Dosage: 40 MG, DAILY
  2. LYRICA [Suspect]
     Indication: BACK PAIN
  3. LISINOPRIL [Concomitant]
     Indication: BLOOD PRESSURE ABNORMAL
     Dosage: 25 MG, DAILY
  4. LYRICA [Suspect]
     Indication: FIBROMYALGIA
     Dosage: 225 MG, 2X/DAY
     Route: 048
  5. CLINDAMYCIN PHOSPHATE [Suspect]
     Indication: SKIN REACTION
     Dosage: UNK
     Dates: start: 20120501
  6. CYMBALTA [Concomitant]
     Dosage: 60 MG, DAILY

REACTIONS (6)
  - OEDEMA PERIPHERAL [None]
  - MYALGIA [None]
  - SKIN REACTION [None]
  - DERMAL CYST [None]
  - THIRST [None]
  - SKIN BURNING SENSATION [None]
